FAERS Safety Report 7296931-8 (Version None)
Quarter: 2011Q1

REPORT INFORMATION
  Report Type: 
  Country: None (occurrence: None)
  Receive Date: 20110216
  Receipt Date: 20110210
  Transmission Date: 20110831
  Serious: Yes (Hospitalization)
  Sender: FDA-Public Use
  Company Number: SE-JNJFOC-20110203376

PATIENT
  Age: 56 Year
  Sex: Male

DRUGS (3)
  1. METHOTREXATE [Concomitant]
     Route: 065
  2. REMICADE [Suspect]
     Indication: SERONEGATIVE ARTHRITIS
     Route: 042
  3. PREDNISOLONE [Concomitant]
     Route: 065

REACTIONS (1)
  - ATRIOVENTRICULAR BLOCK [None]
